FAERS Safety Report 13135984 (Version 4)
Quarter: 2021Q2

REPORT INFORMATION
  Report Type: Report from Study
  Country: US (occurrence: US)
  Receive Date: 20170120
  Receipt Date: 20210519
  Transmission Date: 20210716
  Serious: Yes (Hospitalization, Other)
  Sender: FDA-Public Use
  Company Number: US-JAZZ-2017-US-000185

PATIENT
  Sex: Female

DRUGS (16)
  1. BELBUCA [Suspect]
     Active Substance: BUPRENORPHINE HYDROCHLORIDE
     Indication: PRODUCT USED FOR UNKNOWN INDICATION
  2. FEXOFENADINE HCL [Concomitant]
     Active Substance: FEXOFENADINE HYDROCHLORIDE
  3. LEVOXYL [Concomitant]
     Active Substance: LEVOTHYROXINE SODIUM
  4. XYREM [Suspect]
     Active Substance: SODIUM OXYBATE
     Indication: INSOMNIA
     Dosage: 1.5 G, BID
     Route: 048
     Dates: start: 200705, end: 2007
  5. XYREM [Suspect]
     Active Substance: SODIUM OXYBATE
     Dosage: 4.5 G, BID
     Route: 048
     Dates: start: 201312, end: 20210426
  6. HYDROCHLOROTHIAZIDE. [Concomitant]
     Active Substance: HYDROCHLOROTHIAZIDE
  7. OPANA [Concomitant]
     Active Substance: OXYMORPHONE HYDROCHLORIDE
  8. FLEXERIL [Suspect]
     Active Substance: CYCLOBENZAPRINE HYDROCHLORIDE
     Indication: PRODUCT USED FOR UNKNOWN INDICATION
  9. EXFORGE HCT [Concomitant]
     Active Substance: AMLODIPINE BESYLATE\HYDROCHLOROTHIAZIDE\VALSARTAN
  10. VITAMIN B12 [MECOBALAMIN] [Concomitant]
     Active Substance: METHYLCOBALAMIN
  11. XYREM [Suspect]
     Active Substance: SODIUM OXYBATE
     Indication: NARCOLEPSY
     Dosage: DOSE ADJUSTMENT
     Route: 048
     Dates: start: 201001, end: 201311
  12. ESTROGEL [Concomitant]
     Active Substance: ESTRADIOL
  13. LAMOTRIGINE. [Concomitant]
     Active Substance: LAMOTRIGINE
  14. CHLORPHENIRAMINE [CHLORPHENAMINE] [Concomitant]
     Active Substance: CHLORPHENIRAMINE
  15. VITAMIN B?COMPLEX VITAMIN C [Concomitant]
  16. OMEPRAZOLE. [Concomitant]
     Active Substance: OMEPRAZOLE

REACTIONS (5)
  - Spinal fusion surgery [Unknown]
  - Neck surgery [Unknown]
  - Back disorder [Unknown]
  - Dry mouth [Unknown]
  - Pruritus [Not Recovered/Not Resolved]
